FAERS Safety Report 23102061 (Version 1)
Quarter: 2023Q4

REPORT INFORMATION
  Report Type: Spontaneous
  Country: US (occurrence: US)
  Receive Date: 20231025
  Receipt Date: 20231025
  Transmission Date: 20240110
  Serious: No
  Sender: FDA-Public Use
  Company Number: US-BIOCON RESEARCH LIMITED-BCN-2022-001154

PATIENT
  Age: 71 Year
  Sex: Male

DRUGS (2)
  1. ROSUVASTATIN CALCIUM [Suspect]
     Active Substance: ROSUVASTATIN CALCIUM
     Indication: Hyperlipidaemia
     Dosage: ONCE A DAY
     Dates: start: 2019
  2. NIACIN [Concomitant]
     Active Substance: NIACIN
     Indication: Hyperlipidaemia
     Dosage: EXTENDED RELEASE TABLETS

REACTIONS (1)
  - Low density lipoprotein increased [Unknown]
